FAERS Safety Report 7197749-7 (Version None)
Quarter: 2010Q4

REPORT INFORMATION
  Report Type: 
  Country: None (occurrence: None)
  Receive Date: 20101227
  Receipt Date: 20101218
  Transmission Date: 20110411
  Serious: Yes (Other)
  Sender: FDA-Public Use
  Company Number: US-SANOFI-AVENTIS-2010SA077164

PATIENT
  Age: 51 Year
  Sex: Female

DRUGS (2)
  1. LANTUS [Suspect]
     Indication: TYPE 2 DIABETES MELLITUS
     Dosage: DOSE:70 UNIT(S)
     Route: 058
  2. OPTICLICK [Suspect]
     Indication: TYPE 2 DIABETES MELLITUS

REACTIONS (3)
  - DRUG DOSE OMISSION [None]
  - LIMB OPERATION [None]
  - PAIN [None]
